FAERS Safety Report 4663804-6 (Version None)
Quarter: 2005Q2

REPORT INFORMATION
  Report Type: 
  Country: None (occurrence: None)
  Receive Date: 20050511
  Receipt Date: 20050330
  Transmission Date: 20051028
  Serious: Yes (Hospitalization)
  Sender: FDA-Public Use
  Company Number: 400026

PATIENT
  Sex: Male

DRUGS (1)
  1. PEGASYS [Suspect]
     Dosage: SUBCUTANEOUS
     Route: 058

REACTIONS (1)
  - MYOCARDIAL INFARCTION [None]
